FAERS Safety Report 11552684 (Version 1)
Quarter: 2015Q3

REPORT INFORMATION
  Report Type: Spontaneous
  Country: GB (occurrence: GB)
  Receive Date: 20150925
  Receipt Date: 20150925
  Transmission Date: 20151125
  Serious: Yes (Other)
  Sender: FDA-Public Use
  Company Number: GB-ROCHE-1638441

PATIENT
  Age: 42 Year
  Sex: Male
  Weight: 90 kg

DRUGS (12)
  1. EXVIERA [Suspect]
     Active Substance: DASABUVIR
     Indication: CHRONIC HEPATITIS C
     Dosage: OMBITASVIR 12.4MG/PARITAPREVIR 75MG/RITONAVIR 50MG/DASABUVIR 250MG (AND RIBAVIRIN 1200MG)
     Route: 048
     Dates: start: 20150417
  2. LEVOTHYROXINE. [Concomitant]
     Active Substance: LEVOTHYROXINE
     Route: 065
  3. VITAMIN B COMPLEX [Concomitant]
     Active Substance: CYANOCOBALAMIN\DEXPANTHENOL\NIACINAMIDE\PYRIDOXINE HYDROCHLORIDE\RIBOFLAVIN 5^-PHOSPHATE SODIUM\THIAMINE HYDROCHLORIDE\VITAMIN B COMPLEX
     Route: 065
  4. METHADONE [Concomitant]
     Active Substance: METHADONE HYDROCHLORIDE
  5. VIEKIRAX [Suspect]
     Active Substance: OMBITASVIR\PARITAPREVIR\RITONAVIR
     Indication: CHRONIC HEPATITIS C
     Dosage: OMBITASVIR 12.4MG/PARITAPREVIR 75MG/RITONAVIR 50MG/DASABUVIR 250MG (AND RIBAVIRIN 1200MG)
     Route: 048
     Dates: start: 20150417
  6. GABAPENTIN. [Concomitant]
     Active Substance: GABAPENTIN
     Route: 065
  7. THIAMINE. [Concomitant]
     Active Substance: THIAMINE
     Route: 065
  8. MIRTAZAPINE. [Concomitant]
     Active Substance: MIRTAZAPINE
     Route: 065
  9. DIAZEPAM. [Concomitant]
     Active Substance: DIAZEPAM
     Route: 065
  10. HEROIN [Concomitant]
     Active Substance: DIACETYLMORPHINE
     Route: 065
  11. RIBAVIRIN. [Suspect]
     Active Substance: RIBAVIRIN
     Indication: CHRONIC HEPATITIS C
     Dosage: OMBITASVIR 12.4MG/PARITAPREVIR 75MG/RITONAVIR 50MG/DASABUVIR 250MG (AND RIBAVIRIN 1200MG)
     Route: 048
     Dates: start: 20150417
  12. CITALOPRAM [Concomitant]
     Active Substance: CITALOPRAM HYDROBROMIDE

REACTIONS (1)
  - VIIth nerve paralysis [Recovered/Resolved]

NARRATIVE: CASE EVENT DATE: 20150807
